FAERS Safety Report 25682293 (Version 1)
Quarter: 2025Q3

REPORT INFORMATION
  Report Type: Spontaneous
  Country: CN (occurrence: CN)
  Receive Date: 20250814
  Receipt Date: 20250814
  Transmission Date: 20251020
  Serious: Yes (Hospitalization, Other)
  Sender: Kenvue
  Company Number: CN-KENVUE-20250803652

PATIENT

DRUGS (5)
  1. CHILDRENS MOTRIN [Suspect]
     Active Substance: IBUPROFEN
     Indication: Pyrexia
     Dosage: 4 MILLILITER, FOUR TIME A DAY
     Route: 048
     Dates: start: 20250723
  2. HERBALS [Suspect]
     Active Substance: HERBALS
     Indication: Pyrexia
     Dosage: 10 MILLILITER, FOUR TIME A DAY
     Route: 048
     Dates: start: 20250723
  3. HERBALS [Suspect]
     Active Substance: HERBALS
     Indication: Upper respiratory tract infection
  4. MEZLOCILLIN [Concomitant]
     Active Substance: MEZLOCILLIN
     Indication: Anti-infective therapy
     Dosage: 0.7 GRAM, TWICE A DAY
     Route: 065
     Dates: start: 20250726
  5. GS [Concomitant]
     Indication: Anti-infective therapy
     Dosage: 50 MILLILITER, TWICE A DAY
     Route: 065
     Dates: start: 20250726

REACTIONS (1)
  - White blood cell count decreased [Recovered/Resolved]

NARRATIVE: CASE EVENT DATE: 20250726
